FAERS Safety Report 5502040-8 (Version None)
Quarter: 2007Q4

REPORT INFORMATION
  Report Type: 
  Country: None (occurrence: None)
  Receive Date: 20071030
  Receipt Date: 20070129
  Transmission Date: 20080405
  Serious: No
  Sender: FDA-Public Use
  Company Number: A0637423A

PATIENT
  Age: 56 Year
  Sex: Female

DRUGS (10)
  1. IMITREX [Suspect]
     Indication: MIGRAINE
     Dosage: 20MG AS REQUIRED
     Route: 045
  2. LEXAPRO [Concomitant]
  3. FEXOFENADINE [Concomitant]
  4. CLORAZEPATE [Concomitant]
  5. DIASTAT [Concomitant]
  6. FUROSEMIDE [Concomitant]
  7. SPIRONOLACTONE [Concomitant]
  8. UNKNOWN MEDICATION [Concomitant]
  9. PROPOXY-N [Concomitant]
  10. HYDROCODONE BITARTRATE [Concomitant]

REACTIONS (2)
  - DRUG INEFFECTIVE [None]
  - PHARMACEUTICAL PRODUCT COMPLAINT [None]
